FAERS Safety Report 10265474 (Version 1)
Quarter: 2014Q2

REPORT INFORMATION
  Report Type: Spontaneous
  Country: US (occurrence: US)
  Receive Date: 20140627
  Receipt Date: 20140627
  Transmission Date: 20141212
  Serious: Yes (Death)
  Sender: FDA-Public Use
  Company Number: US-PFIZER INC-2014174285

PATIENT
  Age: 61 Year
  Sex: Male

DRUGS (3)
  1. INLYTA [Suspect]
     Dosage: 5 MG, UNK
  2. VOTRIENT [Suspect]
     Dosage: 200MG AT 4 TABLETS, DAILY
     Route: 048
  3. LEVOTHROID [Concomitant]
     Dosage: UNK

REACTIONS (1)
  - Death [Fatal]
